FAERS Safety Report 9073162 (Version 1)
Quarter: 2013Q1

REPORT INFORMATION
  Report Type: Report from Study
  Country: US (occurrence: US)
  Receive Date: 20130129
  Receipt Date: 20130129
  Transmission Date: 20140127
  Serious: No
  Sender: FDA-Public Use
  Company Number: US-ABBOTT-12P-163-0921590-00

PATIENT
  Age: 62 None
  Sex: Female
  Weight: 90.8 kg

DRUGS (5)
  1. HUMIRA 40 MG/0.8 ML PEN [Suspect]
     Indication: PSORIATIC ARTHROPATHY
     Route: 058
     Dates: start: 20100720, end: 201203
  2. HUMIRA 40 MG/0.8 ML PEN [Suspect]
     Route: 058
     Dates: start: 201205
  3. RELAFEN [Concomitant]
     Indication: PSORIATIC ARTHROPATHY
  4. FOLIC ACID [Concomitant]
     Indication: VITAMIN SUPPLEMENTATION
  5. METHOTREXATE [Concomitant]
     Indication: PSORIATIC ARTHROPATHY

REACTIONS (9)
  - Cough [Recovered/Resolved]
  - Sinus congestion [Recovered/Resolved]
  - Pulmonary congestion [Recovered/Resolved]
  - Injection site erythema [Unknown]
  - Wheezing [Recovered/Resolved]
  - Bronchitis [Recovered/Resolved]
  - Rales [Recovered/Resolved]
  - Pneumonia [Recovered/Resolved]
  - Malaise [Recovered/Resolved]
